FAERS Safety Report 16838696 (Version 5)
Quarter: 2020Q1

REPORT INFORMATION
  Report Type: Report from Study
  Country: US (occurrence: US)
  Receive Date: 20190923
  Receipt Date: 20200309
  Transmission Date: 20200409
  Serious: Yes (Hospitalization)
  Sender: FDA-Public Use
  Company Number: PHHO2019US009375

PATIENT
  Age: 52 Year
  Sex: Female
  Weight: 60.6 kg

DRUGS (2)
  1. COMPARATOR PEMBROLIZUMAB [Suspect]
     Active Substance: PEMBROLIZUMAB
     Indication: NON-SMALL CELL LUNG CANCER
     Dosage: 200 MG, QD D1
     Route: 042
     Dates: start: 20190829
  2. GSK1120212 [Suspect]
     Active Substance: TRAMETINIB
     Indication: NON-SMALL CELL LUNG CANCER
     Dosage: 1.5 MG, QD, D1 TO D10
     Route: 048
     Dates: start: 20190808

REACTIONS (1)
  - Cytomegalovirus oesophagitis [Unknown]

NARRATIVE: CASE EVENT DATE: 20190905
